FAERS Safety Report 5411708-3 (Version None)
Quarter: 2007Q3

REPORT INFORMATION
  Report Type: 
  Country: None (occurrence: None)
  Receive Date: 20070810
  Receipt Date: 20070807
  Transmission Date: 20080115
  Serious: Yes (Hospitalization)
  Sender: FDA-Public Use
  Company Number: PHNR2007AU01454

PATIENT
  Age: 49 Year
  Sex: Female

DRUGS (10)
  1. CYCLOSPORINE [Suspect]
     Indication: RHEUMATOID ARTHRITIS
     Dosage: 300 MG, QD
     Route: 048
     Dates: start: 20061015, end: 20061205
  2. NAPROXEN [Suspect]
     Indication: RHEUMATOID ARTHRITIS
     Dosage: 1 G, QD
     Route: 048
     Dates: end: 20061205
  3. IRBESARTAN [Suspect]
     Dosage: DAILY
     Dates: end: 20061205
  4. RABEPRAZOLE SODIUM [Concomitant]
  5. OXYBUTYNIN CHLORIDE [Concomitant]
  6. OLANZAPINE [Concomitant]
  7. SERTRALINE HYDROCHLORIDE [Concomitant]
  8. LEVOTHYROXINE SODIUM [Concomitant]
  9. EZETIMIBE [Concomitant]
  10. METHOTREXATE [Concomitant]

REACTIONS (4)
  - BLOOD CREATININE INCREASED [None]
  - CREATININE RENAL CLEARANCE DECREASED [None]
  - RENAL FAILURE ACUTE [None]
  - RENAL IMPAIRMENT [None]
